FAERS Safety Report 10172428 (Version 1)
Quarter: 2014Q2

REPORT INFORMATION
  Report Type: Spontaneous
  Country: US (occurrence: US)
  Receive Date: 20140515
  Receipt Date: 20140515
  Transmission Date: 20141212
  Serious: Yes (Hospitalization)
  Sender: FDA-Public Use
  Company Number: US-BAYER-2014-070598

PATIENT
  Age: 27 Year
  Sex: Female
  Weight: 61.22 kg

DRUGS (3)
  1. YAZ [Suspect]
     Dosage: UNK
  2. ZIANA [Concomitant]
     Indication: ACNE
     Route: 061
  3. COUMADIN [Concomitant]
     Indication: PULMONARY EMBOLISM

REACTIONS (1)
  - Pulmonary embolism [None]
